FAERS Safety Report 6637875-1 (Version None)
Quarter: 2010Q1

REPORT INFORMATION
  Report Type: 
  Country: None (occurrence: None)
  Receive Date: 20100315
  Receipt Date: 20100315
  Transmission Date: 20100710
  Serious: Yes (Other)
  Sender: FDA-Public Use
  Company Number: None

PATIENT
  Age: 54 Year
  Sex: Male
  Weight: 124.7392 kg

DRUGS (2)
  1. LORATADINE [Suspect]
     Indication: MULTIPLE ALLERGIES
     Dosage: 1 TABLET PER DAY AS NEEDED PO
     Route: 048
     Dates: start: 20100216, end: 20100311
  2. HYDROCHLOROTHIAZIDE [Suspect]
     Indication: DIURETIC THERAPY
     Dosage: 1 TABLET PER DAY PO
     Route: 048
     Dates: start: 20100119, end: 20100207

REACTIONS (7)
  - GASTROINTESTINAL HAEMORRHAGE [None]
  - HAEMORRHOIDAL HAEMORRHAGE [None]
  - PAIN [None]
  - PAIN IN EXTREMITY [None]
  - PAINFUL DEFAECATION [None]
  - PROCTALGIA [None]
  - PRURITUS [None]
